FAERS Safety Report 4958819-4 (Version None)
Quarter: 2006Q1

REPORT INFORMATION
  Report Type: 
  Country: None (occurrence: None)
  Receive Date: 20060324
  Receipt Date: 20060316
  Transmission Date: 20060701
  Serious: Yes (Other)
  Sender: FDA-Public Use
  Company Number: 2006-03-0691

PATIENT
  Age: 62 Year
  Sex: Female

DRUGS (3)
  1. TEMODAL [Suspect]
     Indication: BRAIN NEOPLASM
     Dosage: 125-335MG QD* ORAL
     Route: 048
     Dates: start: 20051101
  2. ANTIHYPERTENSIVE AGENT (NOS) [Concomitant]
  3. RADIATION THERAPY [Concomitant]

REACTIONS (3)
  - BRAIN OEDEMA [None]
  - DYSGRAPHIA [None]
  - SPEECH DISORDER [None]
